FAERS Safety Report 9096479 (Version 3)
Quarter: 2013Q1

REPORT INFORMATION
  Report Type: Spontaneous
  Country: US (occurrence: US)
  Receive Date: 20130211
  Receipt Date: 20130322
  Transmission Date: 20140127
  Serious: Yes (Death, Other)
  Sender: FDA-Public Use
  Company Number: PHEH2013US003359

PATIENT
  Age: 77 Year
  Sex: Male
  Weight: 60.77 kg

DRUGS (6)
  1. AFINITOR [Suspect]
     Indication: PANCREATIC CARCINOMA
     Route: 048
     Dates: start: 20121219, end: 20130103
  2. FENTANYL [Concomitant]
     Dosage: 50 UG
     Route: 062
  3. METOCLOPRAMIDE [Concomitant]
     Dosage: 5 MG
  4. LORAZEPAM [Concomitant]
     Dosage: 1 MG
     Route: 048
  5. MORPHINE [Concomitant]
     Dosage: 15 MG
     Route: 048
  6. DIGOXIN [Concomitant]
     Dosage: 0.125 MG
     Route: 048

REACTIONS (17)
  - Malignant neoplasm progression [Fatal]
  - Pancreatic carcinoma [Fatal]
  - Gastrointestinal disorder [Unknown]
  - Cardiac murmur [Unknown]
  - Muscle atrophy [Unknown]
  - Scrotal oedema [Unknown]
  - Tachycardia [Unknown]
  - Oedema [Unknown]
  - Metastases to liver [Unknown]
  - Cholangitis [Unknown]
  - Abdominal wall mass [Unknown]
  - Performance status decreased [Unknown]
  - Somnolence [Unknown]
  - Asthenia [Unknown]
  - Pyrexia [Unknown]
  - Productive cough [Unknown]
  - Local swelling [Unknown]
